FAERS Safety Report 7995982-5 (Version None)
Quarter: 2011Q4

REPORT INFORMATION
  Report Type: 
  Country: None (occurrence: None)
  Receive Date: 20111220
  Receipt Date: 20111205
  Transmission Date: 20120403
  Serious: Yes (Hospitalization)
  Sender: FDA-Public Use
  Company Number: PHHY2011DE107607

PATIENT
  Sex: Male

DRUGS (10)
  1. ENALAPRIL [Concomitant]
     Indication: HYPERTENSION
     Dosage: 5 MG, UNK
     Route: 048
  2. METOCLOPRAMIDE [Concomitant]
     Route: 048
  3. POLYETHYLENE GLYCOL [Concomitant]
     Indication: CONSTIPATION
  4. ACETYLSALICYLIC ACID [Concomitant]
     Dosage: 100 MG, ONCE DAILY
  5. MOLSIDOMIN [Concomitant]
     Indication: CORONARY ARTERY DISEASE
     Dosage: 8 MG, UNK
     Route: 048
  6. METOPROLOL TARTRATE [Concomitant]
     Indication: HYPERTENSION
     Dosage: 100 MG, UNK
     Route: 048
  7. OXYCODONE HCL [Concomitant]
     Indication: ANALGESIC THERAPY
  8. PANTOPRAZOLE [Concomitant]
  9. AFINITOR [Suspect]
     Indication: RENAL CELL CARCINOMA
     Dosage: 10 MG, PER DAY
     Route: 048
  10. PREDNISOLONE [Concomitant]
     Indication: POLYMYALGIA RHEUMATICA
     Dosage: 10 MG, UNK
     Route: 048

REACTIONS (4)
  - ASCITES [None]
  - PLEURAL EFFUSION [None]
  - CARDIAC FAILURE [None]
  - ABDOMINAL DISCOMFORT [None]
